FAERS Safety Report 21511521 (Version 5)
Quarter: 2024Q1

REPORT INFORMATION
  Report Type: Report from Study
  Country: US (occurrence: US)
  Receive Date: 20221027
  Receipt Date: 20240310
  Transmission Date: 20240410
  Serious: Yes (Hospitalization, Other)
  Sender: FDA-Public Use
  Company Number: US-ABBVIE-4173834

PATIENT
  Sex: Male

DRUGS (3)
  1. VENCLEXTA [Suspect]
     Active Substance: VENETOCLAX
     Indication: Acute myeloid leukaemia
     Dosage: FORM STRENGTH: 100MG
     Route: 048
     Dates: start: 202205
  2. VENCLEXTA [Suspect]
     Active Substance: VENETOCLAX
     Indication: Acute myeloid leukaemia
     Dosage: FORM STRENGTH: 100 MILLIGRAM
     Route: 048
  3. VENCLEXTA [Suspect]
     Active Substance: VENETOCLAX
     Indication: Acute myeloid leukaemia
     Dosage: FORM STRENGTH: 100 MILLIGRAM
     Route: 048

REACTIONS (17)
  - Cataract [Unknown]
  - Neutrophil count decreased [Unknown]
  - Localised infection [Unknown]
  - Cough [Unknown]
  - Anal incontinence [Unknown]
  - White blood cell count decreased [Unknown]
  - Pneumonia [Unknown]
  - Fungal infection [Unknown]
  - Constipation [Unknown]
  - Diarrhoea [Unknown]
  - Cellulitis [Unknown]
  - Benign prostatic hyperplasia [Unknown]
  - Sinus congestion [Unknown]
  - Globulins decreased [Unknown]
  - Red blood cell count decreased [Unknown]
  - Diarrhoea [Unknown]
  - Incontinence [Unknown]
